FAERS Safety Report 12717421 (Version 2)
Quarter: 2016Q4

REPORT INFORMATION
  Report Type: Report from Study
  Country: BR (occurrence: BR)
  Receive Date: 20160906
  Receipt Date: 20161003
  Transmission Date: 20170207
  Serious: Yes (Other)
  Sender: FDA-Public Use
  Company Number: PHHY2015BR160645

PATIENT
  Sex: Male
  Weight: 74 kg

DRUGS (3)
  1. VOTRIENT [Suspect]
     Active Substance: PAZOPANIB HYDROCHLORIDE
     Dosage: 600 MG, UNK
     Route: 048
  2. VOTRIENT [Suspect]
     Active Substance: PAZOPANIB HYDROCHLORIDE
     Indication: RENAL CANCER
     Dosage: 800 MG, QD
     Route: 048
     Dates: start: 20151107, end: 201605
  3. VOTRIENT [Suspect]
     Active Substance: PAZOPANIB HYDROCHLORIDE
     Dosage: 800 MG, QD
     Route: 048

REACTIONS (39)
  - Tremor [Unknown]
  - Eating disorder [Unknown]
  - Abasia [Unknown]
  - Dry mouth [Unknown]
  - Insomnia [Unknown]
  - Dry eye [Unknown]
  - Weight increased [Unknown]
  - Hair colour changes [Unknown]
  - Metastases to central nervous system [Unknown]
  - Abdominal distension [Unknown]
  - Decreased appetite [Unknown]
  - Nausea [Unknown]
  - Syncope [Unknown]
  - Oral mucosal exfoliation [Unknown]
  - Oral pain [Unknown]
  - Skin depigmentation [Unknown]
  - Asthenia [Unknown]
  - Abdominal pain [Unknown]
  - Second primary malignancy [Unknown]
  - Plicated tongue [Unknown]
  - Malaise [Unknown]
  - Pyrexia [Unknown]
  - Skin disorder [Unknown]
  - Dysphagia [Unknown]
  - Vomiting [Unknown]
  - Dysgeusia [Unknown]
  - Brain neoplasm [Unknown]
  - Pain in extremity [Unknown]
  - Retching [Unknown]
  - Feeding disorder [Recovering/Resolving]
  - Skin fissures [Recovering/Resolving]
  - Dry skin [Unknown]
  - Skin exfoliation [Recovering/Resolving]
  - Burn oral cavity [Unknown]
  - Skin discolouration [Unknown]
  - Diarrhoea [Unknown]
  - Intracranial mass [Unknown]
  - Skin mass [Unknown]
  - Weight decreased [Unknown]
